FAERS Safety Report 8779679 (Version 1)
Quarter: 2012Q4

REPORT INFORMATION
  Report Type: 
  Country: US (occurrence: US)
  Receive Date: 20120912
  Receipt Date: 20120912
  Transmission Date: 20130627
  Serious: No
  Sender: FDA-Public Use
  Company Number: US-TEVA-352852USA

PATIENT
  Age: 69 Year
  Sex: Female
  Weight: 66.74 kg

DRUGS (1)
  1. QNASL [Suspect]
     Indication: RHINITIS ALLERGIC
     Route: 055
     Dates: start: 20120624, end: 20120628

REACTIONS (3)
  - Nasal discomfort [Recovered/Resolved]
  - Cough [Recovered/Resolved]
  - Paraesthesia [Not Recovered/Not Resolved]
